FAERS Safety Report 5776843-9 (Version None)
Quarter: 2008Q2

REPORT INFORMATION
  Report Type: 
  Country: None (occurrence: None)
  Receive Date: 20080618
  Receipt Date: 20080611
  Transmission Date: 20081010
  Serious: Yes (Hospitalization)
  Sender: FDA-Public Use
  Company Number: CH-WATSON-2008-03564

PATIENT
  Age: 75 Year
  Sex: Male

DRUGS (5)
  1. FIORICET [Suspect]
     Indication: PROCEDURAL PAIN
     Dosage: 4 G, OF PARACETAMOL DAILY
     Route: 048
     Dates: start: 20070101
  2. FIORICET [Suspect]
     Dosage: 4 G, OF PARACETAMOL FOR 24 H
     Route: 042
     Dates: start: 20070101
  3. ALCOHOL                            /00002101/ [Suspect]
     Indication: DRUG USE FOR UNKNOWN INDICATION
     Dosage: 50 G, DAILY
     Route: 048
  4. RAMIPRIL [Concomitant]
     Indication: HYPERTENSION
     Dosage: 10 MG, DAILY
     Route: 065
  5. HYDROCHLOROTHIAZIDE [Concomitant]
     Indication: HYPERTENSION
     Dosage: 12.5 MG, DAILY
     Route: 065

REACTIONS (3)
  - ACUTE HEPATIC FAILURE [None]
  - ALCOHOL INTERACTION [None]
  - DRUG INTERACTION [None]
